FAERS Safety Report 4556107-1 (Version None)
Quarter: 2005Q1

REPORT INFORMATION
  Report Type: 
  Country: None (occurrence: None)
  Receive Date: 20050118
  Receipt Date: 20041004
  Transmission Date: 20050727
  Serious: Yes (Other)
  Sender: FDA-Public Use
  Company Number: A03200403346

PATIENT
  Age: 85 Year
  Sex: Male

DRUGS (5)
  1. UROXATRAL [Suspect]
     Indication: BENIGN PROSTATIC HYPERPLASIA
     Dosage: 10 MG QD ORAL
     Route: 048
     Dates: start: 20040920, end: 20040922
  2. ACETYLSALICYLIC ACID SRT [Concomitant]
  3. ALLOPURINOL [Concomitant]
  4. BENAZEPRIL HCL [Concomitant]
  5. OMEPRAZOLE [Concomitant]

REACTIONS (1)
  - SYNCOPE [None]
